FAERS Safety Report 23752578 (Version 1)
Quarter: 2024Q2

REPORT INFORMATION
  Report Type: Spontaneous
  Country: AT (occurrence: AT)
  Receive Date: 20240417
  Receipt Date: 20240417
  Transmission Date: 20240715
  Serious: Yes (Other)
  Sender: FDA-Public Use
  Company Number: AT-DSJP-DSJ-2024-113753

PATIENT
  Age: 66 Year
  Sex: Female
  Weight: 50 kg

DRUGS (9)
  1. TRANEXAMIC ACID [Suspect]
     Active Substance: TRANEXAMIC ACID
     Indication: Gastrointestinal haemorrhage
     Dosage: 1.5 G/DAY FOR 2 DAYS AS AN ATTEMPT TO MANAGE HER GASTROINTESTINAL BLEEDING ALTHOUGH NOT PRIMARILY
     Route: 065
  2. EDOXABAN [Suspect]
     Active Substance: EDOXABAN
     Indication: Deep vein thrombosis
     Dosage: 60 MILLIGRAM, QD (60 MG, QD)
     Route: 065
  3. METOCLOPRAMIDE [Concomitant]
     Active Substance: METOCLOPRAMIDE
     Indication: Nausea
     Dosage: UNK
  4. FLUOROURACIL [Concomitant]
     Active Substance: FLUOROURACIL
     Indication: Chemotherapy
     Dosage: UNK (UNK, CONTINUED FOR 7 MONTHS)
     Route: 065
  5. IRINOTECAN [Concomitant]
     Active Substance: IRINOTECAN
     Indication: Chemotherapy
     Dosage: UNK, CONTINUED FOR 7 MONTHS
     Route: 065
  6. ONDANSETRON [Concomitant]
     Active Substance: ONDANSETRON
     Indication: Nausea
     Dosage: UNK
     Route: 065
  7. UNSPECIFIED INGREDIENT [Concomitant]
     Active Substance: UNSPECIFIED INGREDIENT
     Indication: Pancreatic failure
     Dosage: UNK
  8. GEMCITABINE;PACLITAXEL [Concomitant]
     Indication: Chemotherapy
     Dosage: UNK, CONTINUED FOR 7 MONTHS
  9. DRONABINOL [Concomitant]
     Active Substance: DRONABINOL
     Indication: Nausea
     Dosage: UNK
     Route: 065

REACTIONS (4)
  - Melaena [Recovered/Resolved]
  - Gastrointestinal haemorrhage [Recovered/Resolved]
  - Haematochezia [Recovered/Resolved]
  - Drug ineffective [Unknown]
